FAERS Safety Report 15011091 (Version 1)
Quarter: 2018Q2

REPORT INFORMATION
  Report Type: Report from Study
  Country: US (occurrence: US)
  Receive Date: 20180614
  Receipt Date: 20180614
  Transmission Date: 20180711
  Serious: Yes (Hospitalization)
  Sender: FDA-Public Use
  Company Number: US-BAYER-2018-104491

PATIENT
  Age: 52 Year
  Sex: Male
  Weight: 67.12 kg

DRUGS (10)
  1. OMEPRAZOLE SODIUM [Concomitant]
     Active Substance: OMEPRAZOLE SODIUM
  2. MULTIVITAMINS [Concomitant]
     Active Substance: VITAMINS
  3. VITAMIN B1 [Concomitant]
     Active Substance: THIAMINE HYDROCHLORIDE
     Dosage: DAILY DOSE 100 MG
  4. THIAMINE HCL ABBOTT [Concomitant]
     Dosage: DAILY DOSE 50 MG
  5. TRAMADOL HCL CF [Concomitant]
     Dosage: DAILY DOSE 50 MG
  6. NAPROSYN [Concomitant]
     Active Substance: NAPROXEN
     Dosage: DAILY DOSE 500 MG
  7. NEXAVAR [Suspect]
     Active Substance: SORAFENIB
     Indication: HEPATOCELLULAR CARCINOMA
     Dosage: 200 MG, BID
     Route: 048
     Dates: start: 20180428, end: 20180601
  8. FOLIC ACID. [Concomitant]
     Active Substance: FOLIC ACID
     Dosage: DAILY DOSE .4 MG
  9. OMEPRAZOLE SODIUM [Concomitant]
     Active Substance: OMEPRAZOLE SODIUM
  10. TRAMADOL. [Concomitant]
     Active Substance: TRAMADOL

REACTIONS (7)
  - Blood potassium increased [Unknown]
  - Vomiting [Unknown]
  - Off label use [None]
  - Ammonia increased [Unknown]
  - Blood bilirubin decreased [Unknown]
  - Haemoglobin decreased [Unknown]
  - Upper gastrointestinal haemorrhage [Unknown]

NARRATIVE: CASE EVENT DATE: 20180531
